FAERS Safety Report 5008114-2 (Version None)
Quarter: 2006Q2

REPORT INFORMATION
  Report Type: 
  Country: None (occurrence: None)
  Receive Date: 20060404
  Receipt Date: 20051107
  Transmission Date: 20061013
  Serious: Yes (Other)
  Sender: FDA-Public Use
  Company Number: 2005-0008917

PATIENT
  Age: 44 Year
  Sex: Male
  Weight: 67.586 kg

DRUGS (5)
  1. TRUVADA [Suspect]
     Indication: HIV INFECTION
     Dates: end: 20051001
  2. KALETRA [Concomitant]
  3. LEXIVA [Concomitant]
  4. SEROSTIM [Concomitant]
  5. RITONAVIR [Concomitant]

REACTIONS (1)
  - FANCONI SYNDROME ACQUIRED [None]
